FAERS Safety Report 16894045 (Version 1)
Quarter: 2019Q4

REPORT INFORMATION
  Report Type: Spontaneous
  Country: US (occurrence: US)
  Receive Date: 20190813
  Receipt Date: 20190813
  Transmission Date: 20200122
  Serious: No
  Sender: FDA-Public Use
  Company Number: None

PATIENT
  Age: 81 Year
  Sex: Male

DRUGS (1)
  1. VELTASSA [Suspect]
     Active Substance: PATIROMER
     Indication: HYPERKALAEMIA
     Dosage: ?          OTHER FREQUENCY:SID;?
     Route: 048
     Dates: start: 20160709

REACTIONS (4)
  - Nephrolithiasis [None]
  - Product use issue [None]
  - Therapy cessation [None]
  - Flank pain [None]

NARRATIVE: CASE EVENT DATE: 20190812
